FAERS Safety Report 4917620-8 (Version None)
Quarter: 2006Q1

REPORT INFORMATION
  Report Type: 
  Country: None (occurrence: None)
  Receive Date: 20060221
  Receipt Date: 20060210
  Transmission Date: 20060701
  Serious: Yes (Hospitalization)
  Sender: FDA-Public Use
  Company Number: CH-JNJFOC-20060203300

PATIENT
  Age: 5 Decade
  Sex: Female

DRUGS (6)
  1. RISPERDAL [Suspect]
     Route: 048
  2. RISPERDAL [Suspect]
     Indication: DRUG USE FOR UNKNOWN INDICATION
     Route: 048
  3. SEROQUEL [Suspect]
     Route: 048
  4. SEROQUEL [Suspect]
     Indication: DRUG USE FOR UNKNOWN INDICATION
     Route: 048
  5. SERESTA [Suspect]
     Route: 048
  6. SERESTA [Suspect]
     Indication: DRUG USE FOR UNKNOWN INDICATION
     Route: 048

REACTIONS (5)
  - DYSKINESIA [None]
  - DYSPNOEA [None]
  - HALLUCINATIONS, MIXED [None]
  - HYPERVENTILATION [None]
  - OROPHARYNGEAL SPASM [None]
